FAERS Safety Report 15608655 (Version 1)
Quarter: 2018Q4

REPORT INFORMATION
  Report Type: Spontaneous
  Country: US (occurrence: US)
  Receive Date: 20181107
  Receipt Date: 20181107
  Transmission Date: 20190205
  Serious: No
  Sender: FDA-Public Use
  Company Number: None

PATIENT
  Age: 50 Year
  Sex: Female

DRUGS (1)
  1. XGEVA [Suspect]
     Active Substance: DENOSUMAB
     Route: 058
     Dates: start: 201806, end: 20181106

REACTIONS (2)
  - Therapy cessation [None]
  - Drug intolerance [None]

NARRATIVE: CASE EVENT DATE: 20181106
